FAERS Safety Report 7208335-4 (Version None)
Quarter: 2010Q4

REPORT INFORMATION
  Report Type: 
  Country: None (occurrence: None)
  Receive Date: 20101222
  Receipt Date: 20101209
  Transmission Date: 20110411
  Serious: Yes (Death, Other)
  Sender: FDA-Public Use
  Company Number: 2010005457

PATIENT
  Age: 69 Year
  Sex: Male

DRUGS (2)
  1. TARCEVA [Suspect]
     Indication: PRODUCT USED FOR UNKNOWN INDICATION
     Dosage: ORAL
     Route: 048
     Dates: start: 20100808, end: 20101026
  2. GEMCITABINE [Concomitant]

REACTIONS (2)
  - DISEASE PROGRESSION [None]
  - RASH [None]
